FAERS Safety Report 11896287 (Version 1)
Quarter: 2016Q1

REPORT INFORMATION
  Report Type: Spontaneous
  Country: US (occurrence: US)
  Receive Date: 20160107
  Receipt Date: 20160107
  Transmission Date: 20160526
  Serious: No
  Sender: FDA-Public Use
  Company Number: US-ROCHE-1542782

PATIENT
  Sex: Female

DRUGS (1)
  1. RITUXAN [Suspect]
     Active Substance: RITUXIMAB
     Indication: NON-HODGKIN^S LYMPHOMA
     Dosage: STARTED 9 YEARS AGO, HAD ONE OF THOSE YEARS OFF
     Route: 042
     Dates: start: 2006

REACTIONS (1)
  - Hair texture abnormal [Not Recovered/Not Resolved]
